FAERS Safety Report 6612181-X (Version None)
Quarter: 2010Q1

REPORT INFORMATION
  Report Type: 
  Country: None (occurrence: None)
  Receive Date: 20100303
  Receipt Date: 20100225
  Transmission Date: 20100710
  Serious: Yes (Hospitalization, Other)
  Sender: FDA-Public Use
  Company Number: US-ELI_LILLY_AND_COMPANY-US201002007102

PATIENT
  Age: 82 Year
  Sex: Female

DRUGS (4)
  1. HUMALOG MIX 75/25 [Suspect]
     Dosage: 50 U, 2/D
     Dates: start: 20051201
  2. HUMALOG [Suspect]
  3. GLIMEPIRIDE [Concomitant]
  4. LANTUS [Concomitant]

REACTIONS (10)
  - AGGRESSION [None]
  - BLINDNESS [None]
  - BLOOD GLUCOSE INCREASED [None]
  - CONFUSIONAL STATE [None]
  - DIZZINESS [None]
  - DRUG DOSE OMISSION [None]
  - DRUG INEFFECTIVE [None]
  - FALL [None]
  - MACULAR DEGENERATION [None]
  - MEMORY IMPAIRMENT [None]
